FAERS Safety Report 6921022-2 (Version None)
Quarter: 2010Q3

REPORT INFORMATION
  Report Type: 
  Country: None (occurrence: None)
  Receive Date: 20100812
  Receipt Date: 20100802
  Transmission Date: 20110219
  Serious: Yes (Other)
  Sender: FDA-Public Use
  Company Number: JP-PFIZER INC-2010087415

PATIENT

DRUGS (2)
  1. SELARA [Suspect]
     Dosage: UNK
     Route: 048
  2. WARFARIN [Suspect]
     Dosage: UNK

REACTIONS (1)
  - PROTHROMBIN LEVEL DECREASED [None]
